FAERS Safety Report 25431102 (Version 2)
Quarter: 2025Q3

REPORT INFORMATION
  Report Type: Report from Study
  Country: CA (occurrence: CA)
  Receive Date: 20250612
  Receipt Date: 20250803
  Transmission Date: 20251021
  Serious: Yes (Hospitalization)
  Sender: ALEXION PHARMACEUTICALS
  Company Number: CA-AstraZeneca-CH-00889352A

PATIENT
  Sex: Female

DRUGS (15)
  1. BENRALIZUMAB [Suspect]
     Active Substance: BENRALIZUMAB
     Indication: Asthma
  2. BENRALIZUMAB [Suspect]
     Active Substance: BENRALIZUMAB
  3. ATROVENT [Concomitant]
     Active Substance: IPRATROPIUM BROMIDE
     Route: 065
  4. ADVAIR HFA [Concomitant]
     Active Substance: FLUTICASONE PROPIONATE\SALMETEROL XINAFOATE
     Dosage: 250 MICROGRAM, BID, 1 PUFF
     Route: 065
  5. CREON [Concomitant]
     Active Substance: PANCRELIPASE AMYLASE\PANCRELIPASE LIPASE\PANCRELIPASE PROTEASE
     Route: 065
  6. FLONASE [Concomitant]
     Active Substance: FLUTICASONE PROPIONATE
     Route: 065
  7. PULMOZYME [Concomitant]
     Active Substance: DORNASE ALFA
  8. XOLAIR [Concomitant]
     Active Substance: OMALIZUMAB
  9. TEZSPIRE [Concomitant]
     Active Substance: TEZEPELUMAB-EKKO
  10. PULMICORT TURBUHALER [Concomitant]
     Active Substance: BUDESONIDE
  11. SYMBICORT [Concomitant]
     Active Substance: BUDESONIDE\FORMOTEROL FUMARATE DIHYDRATE
  12. FLOVENT [Concomitant]
     Active Substance: FLUTICASONE PROPIONATE
  13. VENTOLIN [Concomitant]
     Active Substance: ALBUTEROL SULFATE
  14. INSULIN NOS [Concomitant]
     Active Substance: INSULIN NOS
  15. PREDNISONE [Concomitant]
     Active Substance: PREDNISONE

REACTIONS (4)
  - Pneumonia [Unknown]
  - Cardiac disorder [Unknown]
  - Influenza [Unknown]
  - Illness [Unknown]
